FAERS Safety Report 5204867-9 (Version None)
Quarter: 2007Q1

REPORT INFORMATION
  Report Type: 
  Country: None (occurrence: None)
  Receive Date: 20070110
  Receipt Date: 20060815
  Transmission Date: 20070707
  Serious: No
  Sender: FDA-Public Use
  Company Number: US-BRISTOL-MYERS SQUIBB COMPANY-13478219

PATIENT
  Age: 55 Year
  Sex: Female

DRUGS (3)
  1. ABILIFY [Suspect]
     Route: 048
     Dates: start: 20060101, end: 20060101
  2. LEXAPRO [Concomitant]
  3. TRANXENE [Concomitant]

REACTIONS (1)
  - ALOPECIA [None]
